FAERS Safety Report 5523200-6 (Version None)
Quarter: 2007Q4

REPORT INFORMATION
  Report Type: 
  Country: None (occurrence: None)
  Receive Date: 20071121
  Receipt Date: 20071107
  Transmission Date: 20080405
  Serious: Yes (Hospitalization, Other)
  Sender: FDA-Public Use
  Company Number: GB-PURDUE-GBR_2007_0003427

PATIENT
  Sex: Male

DRUGS (1)
  1. MST CONTINUS TABLETS [Suspect]
     Indication: DRUG ABUSE
     Route: 065

REACTIONS (3)
  - DRUG ABUSE [None]
  - DRUG DEPENDENCE [None]
  - HOSPITALISATION [None]
